FAERS Safety Report 14066670 (Version 1)
Quarter: 2017Q4

REPORT INFORMATION
  Report Type: Spontaneous
  Country: US (occurrence: US)
  Receive Date: 20171009
  Receipt Date: 20171009
  Transmission Date: 20180321
  Serious: Yes (Other)
  Sender: FDA-Public Use
  Company Number: US-TEVA-329930USA

PATIENT
  Sex: Female

DRUGS (1)
  1. CARVEDILOL. [Suspect]
     Active Substance: CARVEDILOL

REACTIONS (6)
  - Dry eye [Unknown]
  - Swollen tongue [Unknown]
  - Stomatitis [Unknown]
  - Blister [Unknown]
  - Fatigue [Unknown]
  - Oedema peripheral [Unknown]
